FAERS Safety Report 11542676 (Version 1)
Quarter: 2015Q3

REPORT INFORMATION
  Report Type: Spontaneous
  Country: US (occurrence: US)
  Receive Date: 20150923
  Receipt Date: 20150923
  Transmission Date: 20151125
  Serious: Yes (Death)
  Sender: FDA-Public Use
  Company Number: US-BAUSCH-SYM-2014-22010

PATIENT
  Age: 88 Year
  Sex: Female

DRUGS (3)
  1. XENAZINE [Suspect]
     Active Substance: TETRABENAZINE
     Indication: HUNTINGTON^S DISEASE
     Route: 048
     Dates: start: 20100223
  2. XENAZINE [Suspect]
     Active Substance: TETRABENAZINE
  3. XENAZINE [Suspect]
     Active Substance: TETRABENAZINE

REACTIONS (2)
  - Death [Fatal]
  - Sedation [Unknown]

NARRATIVE: CASE EVENT DATE: 20140501
